FAERS Safety Report 7457310-3 (Version None)
Quarter: 2011Q2

REPORT INFORMATION
  Report Type: 
  Country: None (occurrence: None)
  Receive Date: 20110504
  Receipt Date: 20110427
  Transmission Date: 20111010
  Serious: Yes (Hospitalization)
  Sender: FDA-Public Use
  Company Number: IT-TEVA-278987ISR

PATIENT
  Sex: Female

DRUGS (1)
  1. AZITHROMYCIN [Suspect]
     Indication: TONSILLITIS
     Dosage: 500 MILLIGRAM;
     Route: 048
     Dates: start: 20110416, end: 20110418

REACTIONS (2)
  - DRY MOUTH [None]
  - APHTHOUS STOMATITIS [None]
